FAERS Safety Report 6427283-0 (Version None)
Quarter: 2009Q4

REPORT INFORMATION
  Report Type: 
  Country: None (occurrence: None)
  Receive Date: 20091104
  Receipt Date: 20091030
  Transmission Date: 20100525
  Serious: Yes (Other)
  Sender: FDA-Public Use
  Company Number: B0598731A

PATIENT
  Age: 80 Year
  Sex: Female

DRUGS (2)
  1. ARIXTRA [Suspect]
     Indication: THROMBOSIS PROPHYLAXIS
     Dosage: 1.5MG PER DAY
     Route: 058
     Dates: start: 20091008
  2. LOXONIN [Suspect]
     Indication: ANALGESIC THERAPY
     Route: 048

REACTIONS (4)
  - GASTRIC ULCER [None]
  - HAEMATEMESIS [None]
  - HAEMORRHAGE [None]
  - HAEMORRHAGIC DIATHESIS [None]
